FAERS Safety Report 4445238-2 (Version None)
Quarter: 2004Q3

REPORT INFORMATION
  Report Type: 
  Country: None (occurrence: None)
  Receive Date: 20040819
  Receipt Date: 20040616
  Transmission Date: 20050211
  Serious: Yes (Hospitalization)
  Sender: FDA-Public Use
  Company Number: 2004040651

PATIENT
  Age: 68 Year
  Sex: Female
  Weight: 83.0083 kg

DRUGS (4)
  1. NORVASC [Suspect]
     Indication: HYPERTENSION
     Dosage: 2.5 MG (2.5 MG, 1 IN 1 D), ORAL
     Route: 048
     Dates: start: 20030101, end: 20040601
  2. ENALAPRIL MALEATE [Concomitant]
  3. TOLTERODINE TARTRATE [Concomitant]
  4. GARLIC [Concomitant]

REACTIONS (2)
  - ARRHYTHMIA [None]
  - HEART RATE DECREASED [None]
